FAERS Safety Report 10250207 (Version 1)
Quarter: 2014Q2

REPORT INFORMATION
  Report Type: Spontaneous
  Country: US (occurrence: None)
  Receive Date: 20140618
  Receipt Date: 20140618
  Transmission Date: 20141212
  Serious: Yes (Death)
  Sender: FDA-Public Use
  Company Number: US-JNJFOC-20130113436

PATIENT
  Sex: 0

DRUGS (2)
  1. DECITABINE (DECITABINE) LYOPHILIZED POWDER [Suspect]
     Indication: ACUTE LYMPHOCYTIC LEUKAEMIA
     Route: 042
  2. VORINOSTAT [Suspect]
     Indication: ACUTE LYMPHOCYTIC LEUKAEMIA
     Route: 048

REACTIONS (5)
  - Acute lymphocytic leukaemia [None]
  - Malignant neoplasm progression [None]
  - Hypoxia [None]
  - Acute respiratory distress syndrome [None]
  - Off label use [None]
